FAERS Safety Report 7049395-3 (Version None)
Quarter: 2010Q4

REPORT INFORMATION
  Report Type: 
  Country: None (occurrence: None)
  Receive Date: 20101018
  Receipt Date: 20101011
  Transmission Date: 20110411
  Serious: Yes (Death, Other)
  Sender: FDA-Public Use
  Company Number: GB-ROCHE-732618

PATIENT

DRUGS (2)
  1. TRASTUZUMAB [Suspect]
     Route: 065
  2. CAPECITABINE [Suspect]
     Route: 048

REACTIONS (14)
  - ANAEMIA [None]
  - ANGINA PECTORIS [None]
  - CONSTIPATION [None]
  - DIARRHOEA [None]
  - INFECTION [None]
  - LETHARGY [None]
  - LEUKOPENIA [None]
  - LOWER RESPIRATORY TRACT INFECTION [None]
  - NEUROPATHY PERIPHERAL [None]
  - NEUTROPENIA [None]
  - PALMAR-PLANTAR ERYTHRODYSAESTHESIA SYNDROME [None]
  - STOMATITIS [None]
  - THROMBOCYTOPENIA [None]
  - VOMITING [None]
